FAERS Safety Report 6538772-2 (Version None)
Quarter: 2010Q1

REPORT INFORMATION
  Report Type: 
  Country: None (occurrence: None)
  Receive Date: 20100114
  Receipt Date: 20100114
  Transmission Date: 20100710
  Serious: Yes (Life-Threatening, Hospitalization)
  Sender: FDA-Public Use
  Company Number: None

PATIENT
  Age: 36 Year
  Sex: Female
  Weight: 92.7 kg

DRUGS (1)
  1. BIAXIN [Suspect]

REACTIONS (9)
  - APNOEA [None]
  - CHILLS [None]
  - COAGULOPATHY [None]
  - GENERALISED OEDEMA [None]
  - GRAND MAL CONVULSION [None]
  - JAUNDICE [None]
  - MENTAL STATUS CHANGES [None]
  - NAUSEA [None]
  - PYREXIA [None]
